FAERS Safety Report 5491357-1 (Version None)
Quarter: 2007Q4

REPORT INFORMATION
  Report Type: 
  Country: None (occurrence: None)
  Receive Date: 20071017
  Receipt Date: 20071001
  Transmission Date: 20080405
  Serious: Yes (Life-Threatening, Hospitalization)
  Sender: FDA-Public Use
  Company Number: DSA_30242_2007

PATIENT
  Age: 67 Year
  Sex: Female

DRUGS (6)
  1. ENALAPRIL MALEATE [Suspect]
     Indication: CARDIOVASCULAR DISORDER
     Dosage: (5 MG QD ORAL)
     Route: 048
     Dates: end: 20030101
  2. ENALAPRIL MALEATE [Suspect]
     Indication: CARDIOVASCULAR DISORDER
     Dosage: (DF)
     Dates: start: 20030101
  3. BISOPROLOL FUMARATE [Suspect]
     Indication: CARDIOVASCULAR DISORDER
     Dosage: (5 MG QD)
     Dates: end: 20030101
  4. BISOPROLOL FUMARATE [Suspect]
     Indication: CARDIOVASCULAR DISORDER
     Dosage: (DF)
     Dates: start: 20030101
  5. BUMETANIDE [Concomitant]
  6. ISOSORBIDE MONONITRATE [Concomitant]

REACTIONS (9)
  - BLOOD PRESSURE DIASTOLIC ABNORMAL [None]
  - BLOOD PRESSURE SYSTOLIC DECREASED [None]
  - BRADYCARDIA [None]
  - DIALYSIS [None]
  - DIARRHOEA [None]
  - ELECTROCARDIOGRAM QRS COMPLEX ABNORMAL [None]
  - RENAL FAILURE ACUTE [None]
  - SINOATRIAL BLOCK [None]
  - UNRESPONSIVE TO STIMULI [None]
